FAERS Safety Report 4858756-X (Version None)
Quarter: 2005Q4

REPORT INFORMATION
  Report Type: 
  Country: None (occurrence: None)
  Receive Date: 20051219
  Receipt Date: 20051026
  Transmission Date: 20060501
  Serious: No
  Sender: FDA-Public Use
  Company Number: US-GLAXOSMITHKLINE-A0579711A

PATIENT
  Age: 53 Year
  Sex: Female

DRUGS (3)
  1. NICODERM CQ [Suspect]
     Dates: start: 20051022
  2. COMMIT [Suspect]
  3. TAMOXIFEN [Concomitant]
     Indication: BREAST CANCER

REACTIONS (5)
  - APPLICATION SITE ERYTHEMA [None]
  - HYPERHIDROSIS [None]
  - MOOD SWINGS [None]
  - NAUSEA [None]
  - NIGHTMARE [None]
